FAERS Safety Report 10235474 (Version 2)
Quarter: 2014Q3

REPORT INFORMATION
  Report Type: Spontaneous
  Country: RU (occurrence: RU)
  Receive Date: 20140613
  Receipt Date: 20140911
  Transmission Date: 20150326
  Serious: Yes (Death)
  Sender: FDA-Public Use
  Company Number: RU-BAYER-2014-084364

PATIENT
  Age: 45 Year
  Sex: Female

DRUGS (2)
  1. ULTRAVIST [Suspect]
     Active Substance: IOPROMIDE
     Indication: ONCOLOGIC COMPLICATION
  2. ULTRAVIST [Suspect]
     Active Substance: IOPROMIDE
     Indication: COMPUTERISED TOMOGRAM ABDOMEN
     Dosage: 50 ML, ONCE
     Route: 042
     Dates: start: 20140604, end: 20140604

REACTIONS (5)
  - Vomiting [Fatal]
  - Convulsion [Fatal]
  - Paraesthesia [Fatal]
  - Anaphylactic shock [Fatal]
  - Altered state of consciousness [Fatal]

NARRATIVE: CASE EVENT DATE: 20140604
